FAERS Safety Report 7747498-9 (Version None)
Quarter: 2011Q3

REPORT INFORMATION
  Report Type: 
  Country: None (occurrence: None)
  Receive Date: 20110909
  Receipt Date: 20110826
  Transmission Date: 20111222
  Serious: Yes (Hospitalization)
  Sender: FDA-Public Use
  Company Number: 1000023491

PATIENT
  Sex: Male
  Weight: 3.12 kg

DRUGS (3)
  1. CITALOPRAM HYDROBROMIDE [Suspect]
     Dosage: 20 MG (20 MG, 1 IN 1 D), TRANSPLACENTAL
     Route: 064
     Dates: end: 20110602
  2. OXAZEPAM [Suspect]
     Dosage: 15 MG (15 MG, 1 IN 1 D), TRANSPLACENTAL
     Route: 064
     Dates: end: 20110602
  3. ERYTHROMYCINE [Concomitant]

REACTIONS (4)
  - MATERNAL DRUGS AFFECTING FOETUS [None]
  - HYPOTONIA NEONATAL [None]
  - POSTMATURE BABY [None]
  - MOANING [None]
